FAERS Safety Report 12882469 (Version 1)
Quarter: 2016Q4

REPORT INFORMATION
  Report Type: Spontaneous
  Country: CN (occurrence: CN)
  Receive Date: 20161025
  Receipt Date: 20161025
  Transmission Date: 20170207
  Serious: Yes (Hospitalization)
  Sender: FDA-Public Use
  Company Number: CN-ELI_LILLY_AND_COMPANY-CN201610005257

PATIENT
  Sex: Female

DRUGS (2)
  1. HUMULIN 70/30 [Suspect]
     Active Substance: INSULIN HUMAN
     Dosage: 8 DF, EACH EVENING
     Route: 058
     Dates: start: 2006
  2. HUMULIN 70/30 [Suspect]
     Active Substance: INSULIN HUMAN
     Indication: DIABETES MELLITUS
     Dosage: 12 DF, EACH MORNING
     Route: 058
     Dates: start: 2006

REACTIONS (6)
  - Discomfort [Recovering/Resolving]
  - Thirst [Recovering/Resolving]
  - Hypophagia [Recovering/Resolving]
  - Blood glucose abnormal [Recovering/Resolving]
  - Injection site pain [Recovering/Resolving]
  - Diabetes mellitus [Recovering/Resolving]

NARRATIVE: CASE EVENT DATE: 201509
